FAERS Safety Report 22238989 (Version 3)
Quarter: 2023Q2

REPORT INFORMATION
  Report Type: Spontaneous
  Country: JP (occurrence: JP)
  Receive Date: 20230421
  Receipt Date: 20230519
  Transmission Date: 20230722
  Serious: Yes (Hospitalization)
  Sender: FDA-Public Use
  Company Number: JP-MYLANLABS-2023M1022593

PATIENT
  Age: 59 Year
  Sex: Female
  Weight: 50.5 kg

DRUGS (10)
  1. LYRICA [Suspect]
     Active Substance: PREGABALIN
     Indication: Product used for unknown indication
     Dosage: 50 MILLIGRAM
     Route: 048
     Dates: start: 20190513
  2. LYRICA [Suspect]
     Active Substance: PREGABALIN
     Dosage: 100 MILLIGRAM
     Route: 048
     Dates: start: 20190610
  3. LYRICA [Suspect]
     Active Substance: PREGABALIN
     Dosage: 150 MILLIGRAM
     Route: 048
     Dates: start: 20190624
  4. CELECOXIB [Suspect]
     Active Substance: CELECOXIB
     Indication: Product used for unknown indication
     Dosage: UNK
     Route: 048
     Dates: start: 20190624
  5. LORBRENA [Suspect]
     Active Substance: LORLATINIB
     Indication: Non-small cell lung cancer recurrent
     Dosage: 100 MILLIGRAM, QD
     Route: 065
     Dates: start: 20181210, end: 20190401
  6. LORBRENA [Suspect]
     Active Substance: LORLATINIB
     Dosage: 100 MILLIGRAM, QOD
     Route: 065
     Dates: start: 20190402, end: 20190422
  7. LORBRENA [Suspect]
     Active Substance: LORLATINIB
     Dosage: 75 MILLIGRAM, QD
     Route: 065
     Dates: start: 20190423, end: 20190430
  8. LORBRENA [Suspect]
     Active Substance: LORLATINIB
     Dosage: 50 MILLIGRAM, QOD
     Route: 065
     Dates: start: 20190819, end: 20191001
  9. PYRIDOXAL [Suspect]
     Active Substance: PYRIDOXAL
     Indication: Product used for unknown indication
     Dosage: UNK
     Route: 065
     Dates: start: 20190422
  10. METHYLCOBALAMIN [Suspect]
     Active Substance: METHYLCOBALAMIN
     Indication: Product used for unknown indication
     Dosage: UNK
     Route: 065
     Dates: start: 20190513

REACTIONS (4)
  - Hospitalisation [Unknown]
  - Musculoskeletal stiffness [Recovering/Resolving]
  - Hypoaesthesia [Recovering/Resolving]
  - Condition aggravated [Recovering/Resolving]

NARRATIVE: CASE EVENT DATE: 20190910
